FAERS Safety Report 13179133 (Version 1)
Quarter: 2017Q1

REPORT INFORMATION
  Report Type: Spontaneous
  Country: US (occurrence: US)
  Receive Date: 20170201
  Receipt Date: 20170201
  Transmission Date: 20170428
  Serious: Yes (Disabling)
  Sender: FDA-Public Use
  Company Number: None

PATIENT
  Age: 8 Year
  Sex: Female
  Weight: 30.15 kg

DRUGS (3)
  1. MIRALAX [Suspect]
     Active Substance: POLYETHYLENE GLYCOL 3350
     Indication: CONSTIPATION
     Dosage: ?          QUANTITY:0.5 CAP;OTHER FREQUENCY:EVERY OTHER DAY;?
     Route: 048
     Dates: start: 20160501, end: 20161221
  2. PROZAC [Concomitant]
     Active Substance: FLUOXETINE HYDROCHLORIDE
  3. PROBIOTICS [Concomitant]
     Active Substance: PROBIOTICS NOS

REACTIONS (8)
  - Anger [None]
  - Anxiety [None]
  - Insomnia [None]
  - Abnormal behaviour [None]
  - Aggression [None]
  - Psychomotor hyperactivity [None]
  - Disturbance in attention [None]
  - Tic [None]

NARRATIVE: CASE EVENT DATE: 20160531
